FAERS Safety Report 5179760-0 (Version None)
Quarter: 2006Q4

REPORT INFORMATION
  Report Type: 
  Country: None (occurrence: None)
  Receive Date: 20061211
  Receipt Date: 20061128
  Transmission Date: 20070319
  Serious: Yes (Hospitalization, Other)
  Sender: FDA-Public Use
  Company Number: 2006132922

PATIENT
  Age: 55 Year
  Sex: Male
  Weight: 90 kg

DRUGS (7)
  1. VIAGRA [Suspect]
     Indication: ERECTILE DYSFUNCTION
     Dosage: 100 MG (100 MG, OD: NA), ORAL
     Route: 048
     Dates: start: 20061028, end: 20061028
  2. SELEGILINE (SELEGILINE) [Concomitant]
  3. LEVODOPA-CARBIDOPA (CARBIDOPA, LEVODOPA) [Concomitant]
  4. IBUPROFEN [Concomitant]
  5. XANAX [Concomitant]
  6. ZOLOFT [Concomitant]
  7. ZOLPIDEM TARTRATE [Concomitant]

REACTIONS (25)
  - ABNORMAL BEHAVIOUR [None]
  - AGITATION [None]
  - ANXIETY [None]
  - ASPARTATE AMINOTRANSFERASE INCREASED [None]
  - BLOOD CREATINE PHOSPHOKINASE INCREASED [None]
  - BLOOD CREATININE INCREASED [None]
  - CHILLS [None]
  - CHOREA [None]
  - CHOREOATHETOSIS [None]
  - DEPRESSION [None]
  - ERECTION INCREASED [None]
  - GAIT DISTURBANCE [None]
  - HEART RATE INCREASED [None]
  - HYPERHIDROSIS [None]
  - INSOMNIA [None]
  - MENTAL DISORDER [None]
  - MOTOR DYSFUNCTION [None]
  - MUSCLE SPASMS [None]
  - MUSCULOSKELETAL STIFFNESS [None]
  - PAIN IN EXTREMITY [None]
  - PANIC REACTION [None]
  - PARKINSON'S DISEASE [None]
  - PSYCHOMOTOR HYPERACTIVITY [None]
  - RESTLESSNESS [None]
  - TREMOR [None]
